FAERS Safety Report 9740571 (Version 1)
Quarter: 2013Q4

REPORT INFORMATION
  Report Type: Spontaneous
  Country: US (occurrence: US)
  Receive Date: 20131209
  Receipt Date: 20131209
  Transmission Date: 20140711
  Serious: No
  Sender: FDA-Public Use
  Company Number: US-BIOGENIDEC-2013BI092524

PATIENT
  Age: 31 Year
  Sex: Female

DRUGS (5)
  1. TECFIDERA [Suspect]
     Indication: MULTIPLE SCLEROSIS
     Route: 048
     Dates: start: 201308
  2. CELEXA [Concomitant]
  3. VITAMIN B12 [Concomitant]
  4. ACIDOPHILLUS [Concomitant]
  5. DEPO-PROVERA [Concomitant]

REACTIONS (1)
  - Flushing [Not Recovered/Not Resolved]
